FAERS Safety Report 7472909-6 (Version None)
Quarter: 2011Q2

REPORT INFORMATION
  Report Type: 
  Country: None (occurrence: None)
  Receive Date: 20110511
  Receipt Date: 20110505
  Transmission Date: 20111010
  Serious: Yes (Hospitalization)
  Sender: FDA-Public Use
  Company Number: FR-SANOFI-AVENTIS-2010SA005382

PATIENT
  Age: 56 Year
  Sex: Male
  Weight: 83 kg

DRUGS (9)
  1. BLINDED THERAPY [Suspect]
     Route: 042
     Dates: start: 20091201, end: 20091201
  2. LEUPROLIDE ACETATE [Concomitant]
     Indication: HORMONE THERAPY
     Dates: start: 20080328
  3. SOLU-MEDROL [Suspect]
     Route: 048
     Dates: start: 20091021, end: 20091223
  4. DOCETAXEL [Suspect]
     Route: 042
     Dates: start: 20091001, end: 20091001
  5. BLINDED THERAPY [Suspect]
     Route: 042
     Dates: start: 20091001, end: 20091001
  6. PREDNISONE [Suspect]
     Route: 048
     Dates: start: 20091021, end: 20100127
  7. TRANXENE [Concomitant]
  8. DOCETAXEL [Suspect]
     Route: 042
     Dates: start: 20091201, end: 20091201
  9. ZOLOFT [Concomitant]

REACTIONS (1)
  - RECTAL ULCER [None]
